FAERS Safety Report 15363843 (Version 1)
Quarter: 2018Q3

REPORT INFORMATION
  Report Type: Spontaneous
  Country: US (occurrence: US)
  Receive Date: 20180908
  Receipt Date: 20180908
  Transmission Date: 20181010
  Serious: No
  Sender: FDA-Public Use
  Company Number: US-009507513-1808USA009167

PATIENT
  Sex: Female

DRUGS (1)
  1. NEXPLANON [Suspect]
     Active Substance: ETONOGESTREL
     Dosage: 1 DF, UNK
     Route: 059
     Dates: start: 201808

REACTIONS (4)
  - Implant site inflammation [Unknown]
  - Skin warm [Unknown]
  - Implant site swelling [Unknown]
  - Implant site erythema [Unknown]

NARRATIVE: CASE EVENT DATE: 201808
